FAERS Safety Report 5267126-4 (Version None)
Quarter: 2007Q1

REPORT INFORMATION
  Report Type: 
  Country: None (occurrence: None)
  Receive Date: 20070316
  Receipt Date: 20070312
  Transmission Date: 20070707
  Serious: Yes (Death)
  Sender: FDA-Public Use
  Company Number: US-AMGEN-US214805

PATIENT
  Sex: Female
  Weight: 68.1 kg

DRUGS (3)
  1. PROCRIT [Suspect]
     Indication: RENAL FAILURE CHRONIC
     Route: 065
     Dates: start: 20060701, end: 20070212
  2. ANTIHYPERTENSIVE MEDICATION NOS [Concomitant]
  3. PHENERGAN HCL [Concomitant]

REACTIONS (6)
  - ABDOMINAL NEOPLASM [None]
  - CONVULSION [None]
  - DEATH [None]
  - NAUSEA [None]
  - NEOPLASM SKIN [None]
  - RASH PRURITIC [None]
